FAERS Safety Report 7999125-3 (Version None)
Quarter: 2011Q4

REPORT INFORMATION
  Report Type: 
  Country: None (occurrence: None)
  Receive Date: 20111221
  Receipt Date: 20111215
  Transmission Date: 20120403
  Serious: No
  Sender: FDA-Public Use
  Company Number: US-B.I. PHARMACEUTICALS,INC./RIDGEFIELD-2011-BP-28199BP

PATIENT
  Sex: Female

DRUGS (15)
  1. LOSARTAN POTASSIUM [Concomitant]
     Indication: HYPERTENSION
     Dosage: 100 MG
     Route: 048
     Dates: start: 20010101
  2. AMIODARONE HCL [Concomitant]
     Indication: ATRIAL FIBRILLATION
     Route: 048
     Dates: start: 20090101
  3. AMLODIPINE [Concomitant]
     Indication: HYPERTENSION
     Route: 048
     Dates: end: 20010101
  4. LUTEIN [Concomitant]
     Indication: SUPPLEMENTATION THERAPY
     Dosage: 20 MG
     Route: 048
     Dates: start: 20070101
  5. VITAMIN-MINERAL COMPOUND TAB [Concomitant]
     Indication: SUPPLEMENTATION THERAPY
     Route: 048
     Dates: start: 20090101
  6. VITAMIN D [Concomitant]
     Indication: SUPPLEMENTATION THERAPY
     Dosage: 800 U
     Route: 048
     Dates: start: 20010101
  7. GLUCOSAMINE CHONDROTIN [Concomitant]
     Indication: SUPPLEMENTATION THERAPY
     Route: 048
     Dates: start: 20010101
  8. MULTI-VITAMIN [Concomitant]
     Indication: SUPPLEMENTATION THERAPY
     Route: 048
     Dates: start: 19810101
  9. ENABLEX [Concomitant]
     Indication: INCONTINENCE
     Dosage: 7.5 MG
     Route: 048
     Dates: start: 20060101
  10. FISH OIL [Concomitant]
     Indication: SUPPLEMENTATION THERAPY
     Route: 048
     Dates: start: 20100101
  11. PRADAXA [Suspect]
     Indication: ATRIAL FIBRILLATION
     Dosage: 300 MG
     Route: 048
     Dates: start: 20111209
  12. BIOTIN [Concomitant]
     Indication: SUPPLEMENTATION THERAPY
     Dosage: 5 MG
     Route: 048
     Dates: start: 20100101
  13. CALCIUM [Concomitant]
     Indication: SUPPLEMENTATION THERAPY
     Dosage: 1200 MG
     Route: 048
     Dates: start: 20070101
  14. SYSTANE [Concomitant]
     Indication: EYE LUBRICATION THERAPY
     Dates: start: 20100101
  15. METAMUCIL-2 [Concomitant]
     Indication: CONSTIPATION
     Route: 048
     Dates: start: 20060101

REACTIONS (2)
  - ABDOMINAL PAIN UPPER [None]
  - HEADACHE [None]
